FAERS Safety Report 9680288 (Version 1)
Quarter: 2013Q4

REPORT INFORMATION
  Report Type: Other
  Country: US (occurrence: US)
  Receive Date: 20131111
  Receipt Date: 20131111
  Transmission Date: 20140711
  Serious: Yes (Life-Threatening, Hospitalization)
  Sender: FDA-Public Use
  Company Number: US-BRISTOL-MYERS SQUIBB COMPANY-19788884

PATIENT
  Age: 59 Year
  Sex: Female

DRUGS (2)
  1. CARBOPLATIN [Suspect]
     Indication: UTERINE CANCER
  2. DOCETAXEL [Suspect]
     Indication: UTERINE CANCER

REACTIONS (4)
  - Tumour lysis syndrome [Recovered/Resolved]
  - Skin disorder [Recovered/Resolved]
  - Infection [Recovered/Resolved]
  - Pulmonary embolism [Recovered/Resolved]
